FAERS Safety Report 5563370-7 (Version None)
Quarter: 2007Q4

REPORT INFORMATION
  Report Type: 
  Country: None (occurrence: None)
  Receive Date: 20071217
  Receipt Date: 20070507
  Transmission Date: 20080405
  Serious: No
  Sender: FDA-Public Use
  Company Number: US-ASTRAZENECA-2006UW04995

PATIENT
  Age: 81 Year
  Sex: Female
  Weight: 72.6 kg

DRUGS (6)
  1. CRESTOR [Suspect]
     Indication: BLOOD CHOLESTEROL INCREASED
     Route: 048
  2. BENICAR [Concomitant]
  3. HYDROCHLOROTHIAZIDE [Concomitant]
  4. FOLGARD [Concomitant]
  5. NISEDECAL [Concomitant]
  6. COLAZAL [Concomitant]

REACTIONS (3)
  - ABDOMINAL PAIN [None]
  - BURNING SENSATION [None]
  - DIARRHOEA [None]
